FAERS Safety Report 14753412 (Version 1)
Quarter: 2018Q2

REPORT INFORMATION
  Report Type: Spontaneous
  Country: GB (occurrence: GB)
  Receive Date: 20180412
  Receipt Date: 20180412
  Transmission Date: 20180711
  Serious: Yes (Other)
  Sender: FDA-Public Use
  Company Number: GB-TEVA-2018-GB-881183

PATIENT
  Age: 32 Year
  Sex: Female

DRUGS (1)
  1. COPAXONE [Suspect]
     Active Substance: GLATIRAMER ACETATE
     Dosage: UNKNOWN DOSAGE
     Route: 058

REACTIONS (7)
  - Lipoatrophy [Unknown]
  - Fall [Unknown]
  - Multiple sclerosis relapse [Unknown]
  - Hip fracture [Unknown]
  - Atrophy [Unknown]
  - Gait disturbance [Unknown]
  - Cognitive disorder [Unknown]
